FAERS Safety Report 10192618 (Version 2)
Quarter: 2014Q2

REPORT INFORMATION
  Report Type: Spontaneous
  Country: US (occurrence: US)
  Receive Date: 20140523
  Receipt Date: 20140523
  Transmission Date: 20141212
  Serious: No
  Sender: FDA-Public Use
  Company Number: US-BAXTER-2014BAX019941

PATIENT
  Sex: Female
  Weight: 90 kg

DRUGS (6)
  1. DIANEAL LOW CALCIUM [Suspect]
     Indication: RENAL FAILURE CHRONIC
     Route: 033
     Dates: start: 201301
  2. DIANEAL LOW CALCIUM [Suspect]
     Route: 033
     Dates: start: 201301
  3. DIANEAL LOW CALCIUM [Suspect]
     Indication: RENAL FAILURE CHRONIC
     Route: 033
     Dates: start: 201301
  4. DIANEAL LOW CALCIUM [Suspect]
     Route: 033
     Dates: start: 201301
  5. DIANEAL LOW CALCIUM [Suspect]
     Indication: RENAL FAILURE CHRONIC
     Route: 033
     Dates: start: 201301
  6. DIANEAL LOW CALCIUM [Suspect]
     Route: 033
     Dates: start: 201301

REACTIONS (1)
  - Haemoglobin decreased [Recovered/Resolved]
